FAERS Safety Report 16071217 (Version 1)
Quarter: 2019Q1

REPORT INFORMATION
  Report Type: Spontaneous
  Country: US (occurrence: US)
  Receive Date: 20190213
  Receipt Date: 20190213
  Transmission Date: 20190418
  Serious: No
  Sender: FDA-Public Use
  Company Number: None

PATIENT
  Age: 46 Year
  Sex: Female

DRUGS (1)
  1. CYCLOSPORINE CAP  100MG [Suspect]
     Active Substance: CYCLOSPORINE
     Dates: start: 201902

REACTIONS (2)
  - Product use complaint [None]
  - Product dispensing error [None]

NARRATIVE: CASE EVENT DATE: 20190207
